FAERS Safety Report 21363198 (Version 1)
Quarter: 2022Q3

REPORT INFORMATION
  Report Type: Spontaneous
  Country: CN (occurrence: CN)
  Receive Date: 20220922
  Receipt Date: 20220922
  Transmission Date: 20221027
  Serious: Yes (Hospitalization, Other)
  Sender: FDA-Public Use
  Company Number: None

PATIENT
  Age: 49 Year
  Sex: Female

DRUGS (7)
  1. CYCLOPHOSPHAMIDE [Suspect]
     Active Substance: CYCLOPHOSPHAMIDE
     Indication: Invasive breast carcinoma
     Dosage: 800 MG, D1/21 DAYS, DILUTED WITH NORMAL SALINE
     Route: 042
     Dates: start: 20220709, end: 20220709
  2. SODIUM CHLORIDE [Suspect]
     Active Substance: SODIUM CHLORIDE
     Indication: Vehicle solution use
     Dosage: D1/21 DAYS, DILUTED WITH CYCLOPHOSPHAMIDE 800 MG
     Route: 042
     Dates: start: 20220709, end: 20220709
  3. SODIUM CHLORIDE [Suspect]
     Active Substance: SODIUM CHLORIDE
     Dosage: ONCE, D1, DILUTED WITH DOCETAXEL 100 MG
     Route: 041
     Dates: start: 20220709, end: 20220709
  4. DEXTROSE MONOHYDRATE [Suspect]
     Active Substance: DEXTROSE MONOHYDRATE
     Indication: Vehicle solution use
     Dosage: ONCE, D1, DILUTED WITH LIPOSOMAL DOXORUBICIN HYDROCHLORIDE 40 MG
     Route: 042
     Dates: start: 20220709, end: 20220709
  5. DOCETAXEL [Suspect]
     Active Substance: DOCETAXEL
     Indication: Invasive breast carcinoma
     Dosage: 100 MG, D1, ONCE, DILUTED WITH NORMAL SALINE
     Route: 041
     Dates: start: 20220709, end: 20220709
  6. DOXORUBICIN HYDROCHLORIDE [Suspect]
     Active Substance: DOXORUBICIN HYDROCHLORIDE
     Indication: Invasive breast carcinoma
     Dosage: 40 MG, D1, ONCE, DILUTED WITH 5% GLUCOSE
     Route: 042
     Dates: start: 20220709, end: 20220709
  7. NIFEDIPINE [Concomitant]
     Active Substance: NIFEDIPINE
     Indication: Hypertension
     Dosage: 30 MG, QD
     Route: 048
     Dates: start: 20220709, end: 20220731

REACTIONS (1)
  - Drug-induced liver injury [Recovering/Resolving]

NARRATIVE: CASE EVENT DATE: 20220731
